FAERS Safety Report 6701636-5 (Version None)
Quarter: 2010Q2

REPORT INFORMATION
  Report Type: 
  Country: None (occurrence: None)
  Receive Date: 20100429
  Receipt Date: 20100423
  Transmission Date: 20101027
  Serious: Yes (Hospitalization)
  Sender: FDA-Public Use
  Company Number: CH-BAYER-201022932GPV

PATIENT
  Age: 95 Year
  Sex: Male

DRUGS (5)
  1. ASPIRIN [Suspect]
     Indication: DRUG USE FOR UNKNOWN INDICATION
     Dosage: TOTAL DAILY DOSE: 100 MG  UNIT DOSE: 100 MG
     Route: 048
  2. MEFENAMIC ACID [Suspect]
     Indication: PAIN
     Route: 048
     Dates: start: 20100328, end: 20100331
  3. SPIRONOLACTONE [Suspect]
     Indication: DRUG USE FOR UNKNOWN INDICATION
     Route: 048
     Dates: end: 20100331
  4. CARVEDILOL [Concomitant]
  5. ATORVASTATIN [Concomitant]

REACTIONS (3)
  - ANURIA [None]
  - HYPERKALAEMIA [None]
  - RENAL FAILURE ACUTE [None]
